FAERS Safety Report 8614212-4 (Version None)
Quarter: 2012Q3

REPORT INFORMATION
  Report Type: 
  Country: None (occurrence: None)
  Receive Date: 20120823
  Receipt Date: 20120813
  Transmission Date: 20120928
  Serious: Yes (Hospitalization, Disabling)
  Sender: FDA-Public Use
  Company Number: US-009507513-1207USA007749

PATIENT

DRUGS (14)
  1. IMDUR [Concomitant]
     Dosage: 120 MG, UNK
     Route: 048
  2. ASPIRIN [Concomitant]
     Dosage: 81 MG, UNK
     Route: 048
  3. CALCIUM 500 [Concomitant]
     Dosage: 500 MG, UNK
     Route: 048
  4. VITAMIN B COMPLEX CAP [Concomitant]
     Route: 048
  5. METOPROLOL TARTRATE [Concomitant]
     Dosage: 100 MG, UNK
     Route: 048
  6. HYDRALAZINE HCL [Concomitant]
     Dosage: 100 MG, UNK
     Route: 048
  7. FISH OIL [Concomitant]
     Route: 048
  8. REBETOL [Suspect]
     Dosage: 200 MG, UNK
     Route: 048
     Dates: start: 20120516
  9. TRICOR [Concomitant]
     Dosage: 145 MG, UNK
     Route: 048
  10. PEGASYS [Suspect]
     Dosage: UNK
     Route: 058
     Dates: start: 20120516
  11. CARDURA [Concomitant]
     Dosage: 2 MG, UNK
     Route: 048
  12. VICTRELIS [Suspect]
     Dosage: 200 MG, TID
     Route: 048
     Dates: start: 20120627, end: 20120703
  13. PROCARDIA XL [Concomitant]
     Dosage: 30 MG, UNK
     Route: 048
  14. LASIX [Concomitant]
     Dosage: 20 MG, UNK
     Route: 048

REACTIONS (5)
  - DYSPNOEA [None]
  - ANAEMIA [None]
  - ASTHENIA [None]
  - CHEST DISCOMFORT [None]
  - BLOOD PRESSURE DECREASED [None]
